FAERS Safety Report 21051356 (Version 1)
Quarter: 2022Q3

REPORT INFORMATION
  Report Type: Spontaneous
  Country: IT (occurrence: IT)
  Receive Date: 20220707
  Receipt Date: 20220707
  Transmission Date: 20221027
  Serious: Yes (Hospitalization)
  Sender: FDA-Public Use
  Company Number: IT-TEVA-2022-IT-2052216

PATIENT

DRUGS (2)
  1. QUETIAPINE [Interacting]
     Active Substance: QUETIAPINE
     Indication: Bipolar I disorder
     Dosage: 25 MG
     Route: 065
  2. HALOPERIDOL [Interacting]
     Active Substance: HALOPERIDOL
     Indication: Bipolar I disorder
     Dosage: 2 MG, DEFINED DAILY DOSE: 8MG
     Route: 065

REACTIONS (2)
  - Tremor [Unknown]
  - Drug interaction [Unknown]
